FAERS Safety Report 9410298 (Version 2)
Quarter: 2013Q3

REPORT INFORMATION
  Report Type: Spontaneous
  Country: US (occurrence: US)
  Receive Date: 20130719
  Receipt Date: 20130924
  Transmission Date: 20140515
  Serious: No
  Sender: FDA-Public Use
  Company Number: US-PFIZER INC-2013210446

PATIENT
  Age: 58 Year
  Sex: Male
  Weight: 72.6 kg

DRUGS (6)
  1. XALKORI [Suspect]
     Indication: LUNG NEOPLASM MALIGNANT
     Dosage: 250 MG, 2X/DAY
     Route: 048
     Dates: start: 20121018
  2. XALKORI [Suspect]
     Indication: BRONCHIAL CARCINOMA
  3. CELEBREX [Concomitant]
     Dosage: 1 DF, 1X/DAY (1 TABLET CAPSULE ORAL DAILY)
     Route: 048
  4. MELATONIN [Concomitant]
     Dosage: 3 MG, AS NEEDED (1 CAPSULE (OF 3 MG) CAPSULE ORAL AT BEDTIME PRN)
     Route: 048
  5. PULMICORT [Concomitant]
     Dosage: UNK
  6. SPIRIVA HANDIHALER [Concomitant]
     Dosage: UNK

REACTIONS (4)
  - Hypotension [Not Recovered/Not Resolved]
  - Dizziness [Unknown]
  - Oedema peripheral [Unknown]
  - Sinus bradycardia [Unknown]
